FAERS Safety Report 7860664-7 (Version None)
Quarter: 2011Q4

REPORT INFORMATION
  Report Type: 
  Country: None (occurrence: None)
  Receive Date: 20111027
  Receipt Date: 20111012
  Transmission Date: 20120403
  Serious: Yes (Death, Hospitalization)
  Sender: FDA-Public Use
  Company Number: US-JUTA GMBH-2011-17167

PATIENT
  Age: 48 Year
  Sex: Female

DRUGS (1)
  1. LAMOTRIGINE [Suspect]
     Indication: PRODUCT USED FOR UNKNOWN INDICATION
     Dosage: 7.5 G, SINGLE
     Route: 048

REACTIONS (3)
  - CARDIAC ARREST [None]
  - STATUS EPILEPTICUS [None]
  - CIRCULATORY COLLAPSE [None]
